FAERS Safety Report 6239122-1 (Version None)
Quarter: 2009Q2

REPORT INFORMATION
  Report Type: 
  Country: None (occurrence: None)
  Receive Date: 20090618
  Receipt Date: 20090618
  Transmission Date: 20091009
  Serious: Yes (Life-Threatening, Disabling)
  Sender: FDA-Public Use
  Company Number: None

PATIENT
  Age: 58 Year
  Sex: Female
  Weight: 83.9154 kg

DRUGS (1)
  1. ZICAM COLD REMEDY SWABS 2X MATRIXX INITIATIVES INC [Suspect]
     Indication: NASOPHARYNGITIS
     Dosage: 1 SWAB (SAYS EVERY 4 HOURS DAILY INSIDE RIM OF NOSE BUT I APPLIED ONCE ADAY FOR ONLY 2 DAYS
     Route: 045
     Dates: start: 20080401

REACTIONS (2)
  - ANOSMIA [None]
  - PRODUCT LABEL ISSUE [None]
